FAERS Safety Report 4518142-9 (Version None)
Quarter: 2004Q4

REPORT INFORMATION
  Report Type: 
  Country: None (occurrence: None)
  Receive Date: 20041130
  Receipt Date: 20041117
  Transmission Date: 20050328
  Serious: Yes (Other)
  Sender: FDA-Public Use
  Company Number: 2004095804

PATIENT
  Age: 66 Year
  Sex: Female
  Weight: 52.1637 kg

DRUGS (4)
  1. CELEBREX [Suspect]
     Indication: OSTEOARTHRITIS
     Dosage: ORAL
     Route: 048
     Dates: start: 20010101
  2. CELEBREX [Suspect]
     Indication: OSTEOARTHRITIS
     Dosage: ORAL
     Route: 048
     Dates: start: 20010101
  3. DURAGESIC [Concomitant]
  4. XANAX [Concomitant]

REACTIONS (4)
  - EATING DISORDER [None]
  - GASTRIC DISORDER [None]
  - KNEE ARTHROPLASTY [None]
  - POST PROCEDURAL COMPLICATION [None]
